FAERS Safety Report 13605350 (Version 1)
Quarter: 2017Q2

REPORT INFORMATION
  Report Type: Spontaneous
  Country: US (occurrence: US)
  Receive Date: 20170602
  Receipt Date: 20170602
  Transmission Date: 20170830
  Serious: Yes (Other)
  Sender: FDA-Public Use
  Company Number: US-NOVEN PHARMACEUTICALS, INC.-US2016002357

PATIENT

DRUGS (4)
  1. DAYTRANA [Suspect]
     Active Substance: METHYLPHENIDATE
     Indication: ATTENTION DEFICIT/HYPERACTIVITY DISORDER
     Dosage: 10 MG, UNKNOWN
     Route: 062
  2. QUILLIVANT XR [Suspect]
     Active Substance: METHYLPHENIDATE HYDROCHLORIDE
     Indication: ATTENTION DEFICIT/HYPERACTIVITY DISORDER
     Dosage: UNK, UNKNOWN
     Route: 065
  3. ALLEGRA [Concomitant]
     Active Substance: FEXOFENADINE HYDROCHLORIDE
     Indication: SEASONAL ALLERGY
  4. DAYTRANA [Suspect]
     Active Substance: METHYLPHENIDATE
     Dosage: 20 MG, UNKNOWN
     Route: 062

REACTIONS (10)
  - Off label use [Unknown]
  - Regressive behaviour [Unknown]
  - Abnormal behaviour [Unknown]
  - Wrong technique in product usage process [Unknown]
  - Decreased appetite [Unknown]
  - Aggression [Unknown]
  - Product quality issue [Unknown]
  - Tic [Unknown]
  - Product adhesion issue [Unknown]
  - Disturbance in attention [Unknown]
